FAERS Safety Report 5376380-X (Version None)
Quarter: 2007Q3

REPORT INFORMATION
  Report Type: 
  Country: None (occurrence: None)
  Receive Date: 20070702
  Receipt Date: 20070620
  Transmission Date: 20080115
  Serious: Yes (Death, Hospitalization, Other)
  Sender: FDA-Public Use
  Company Number: BR-PFIZER INC-2007044211

PATIENT
  Age: 72 Year
  Sex: Female

DRUGS (1)
  1. SUTENT [Suspect]
     Indication: GASTROINTESTINAL STROMAL TUMOUR
     Route: 048
     Dates: start: 20070101, end: 20070201

REACTIONS (4)
  - CEREBROVASCULAR ACCIDENT [None]
  - HAEMORRHAGE [None]
  - HYPERTENSION [None]
  - THROMBOCYTOPENIA [None]
